FAERS Safety Report 15338328 (Version 1)
Quarter: 2018Q3

REPORT INFORMATION
  Report Type: Spontaneous
  Country: US (occurrence: US)
  Receive Date: 20180831
  Receipt Date: 20180831
  Transmission Date: 20181010
  Serious: Yes (Other)
  Sender: FDA-Public Use
  Company Number: US-BAYER-2018-161924

PATIENT
  Age: 36 Year
  Sex: Female

DRUGS (2)
  1. MIRENA [Suspect]
     Active Substance: LEVONORGESTREL
     Dosage: 20 MCG/24HR, CONT
     Route: 015
     Dates: start: 20121031, end: 20170707
  2. MIRENA [Suspect]
     Active Substance: LEVONORGESTREL
     Dosage: 20 MCG/24HR, CONT
     Route: 015
     Dates: start: 20070416, end: 20121031

REACTIONS (8)
  - Tinnitus [Unknown]
  - Visual impairment [Unknown]
  - Occipital neuralgia [Unknown]
  - Papilloedema [Unknown]
  - Empty sella syndrome [None]
  - Idiopathic intracranial hypertension [Unknown]
  - Myofascial pain syndrome [None]
  - Headache [Unknown]
